FAERS Safety Report 7514735-5 (Version None)
Quarter: 2011Q2

REPORT INFORMATION
  Report Type: 
  Country: None (occurrence: None)
  Receive Date: 20110526
  Receipt Date: 20110526
  Transmission Date: 20111010
  Serious: Yes (Hospitalization)
  Sender: FDA-Public Use
  Company Number: None

PATIENT
  Age: 33 Year
  Sex: Female
  Weight: 131.5431 kg

DRUGS (2)
  1. TRAMADOL HCL [Suspect]
     Indication: PAIN
     Dosage: 1-2 (50 MG TABLET) EVERY 6 HRS AS NEEDED 047 (ORAL)
     Route: 048
     Dates: start: 20110504, end: 20110510
  2. CIPROFLOXACIN [Suspect]
     Indication: INFECTION
     Dosage: 1 (500 MG TABLET) EVERY 12 HR FOR 10 DAYS 047 (ORAL)
     Route: 048
     Dates: start: 20110504, end: 20110510

REACTIONS (3)
  - VISION BLURRED [None]
  - DIPLOPIA [None]
  - EYE PAIN [None]
